FAERS Safety Report 7437977-6 (Version None)
Quarter: 2011Q2

REPORT INFORMATION
  Report Type: 
  Country: None (occurrence: None)
  Receive Date: 20110426
  Receipt Date: 20110419
  Transmission Date: 20111010
  Serious: Yes (Other)
  Sender: FDA-Public Use
  Company Number: FR-PFIZER INC-2011078882

PATIENT
  Age: 29 Year
  Sex: Female

DRUGS (6)
  1. ZYPREXA [Suspect]
     Dosage: 10 MG, 1X/DAY
     Dates: end: 20101201
  2. TERCIAN [Suspect]
     Dosage: 15 GTT, 2X/DAY
     Dates: end: 20101201
  3. PROZAC [Suspect]
     Dosage: 20 MG, 1X/DAY
     Dates: end: 20101201
  4. LEVOTHYROX [Suspect]
     Dosage: UNK
     Dates: end: 20110115
  5. XANAX [Suspect]
     Dosage: 0.5 MG, 6 TO 8X/DAY
     Dates: end: 20110115
  6. FLIXOTIDE [Suspect]
     Dosage: UNK
     Dates: end: 20110115

REACTIONS (1)
  - URINARY TRACT INFECTION BACTERIAL [None]
